FAERS Safety Report 12633869 (Version 2)
Quarter: 2016Q3

REPORT INFORMATION
  Report Type: Report from Study
  Country: ES (occurrence: ES)
  Receive Date: 20160808
  Receipt Date: 20160810
  Transmission Date: 20161109
  Serious: Yes (Death, Life-Threatening, Hospitalization)
  Sender: FDA-Public Use
  Company Number: ES-ABBVIE-16P-144-1694694-00

PATIENT
  Age: 79 Year
  Sex: Female

DRUGS (2)
  1. DUODOPA [Suspect]
     Active Substance: CARBIDOPA\LEVODOPA
     Indication: PARKINSON^S DISEASE
     Route: 050
     Dates: start: 20150611, end: 201608
  2. VALPROIC ACID. [Suspect]
     Active Substance: VALPROIC ACID
     Indication: EPILEPSY
     Route: 065
     Dates: start: 20160725, end: 20160725

REACTIONS (5)
  - Rash generalised [Recovered/Resolved]
  - Syncope [Recovered/Resolved]
  - Bone marrow failure [Fatal]
  - Normochromic normocytic anaemia [Fatal]
  - Epilepsy [Fatal]

NARRATIVE: CASE EVENT DATE: 201607
